FAERS Safety Report 18542427 (Version 1)
Quarter: 2020Q4

REPORT INFORMATION
  Report Type: Spontaneous
  Country: JP (occurrence: JP)
  Receive Date: 20201124
  Receipt Date: 20201124
  Transmission Date: 20210114
  Serious: Yes (Other)
  Sender: FDA-Public Use
  Company Number: JP-ADMA BIOLOGICS INC.-JP-2020ADM000010

PATIENT
  Age: 87 Year
  Sex: Female

DRUGS (4)
  1. PREDNISOLONE                       /00016202/ [Concomitant]
     Active Substance: PREDNISOLONE
     Dosage: 10 MG, QD
  2. IMMUNE GLOBULIN INTRAVENOUS, HUMAN ? SLRA [Suspect]
     Active Substance: HUMAN IMMUNOGLOBULIN G
     Indication: MYASTHENIA GRAVIS CRISIS
     Dosage: 400 MG/KG PER DAY, CONTINUOUS INFUSED AT 500ML PER DAY
     Route: 042
  3. PREDNISOLONE                       /00016202/ [Concomitant]
     Active Substance: PREDNISOLONE
     Indication: MYASTHENIA GRAVIS
     Dosage: 5 MG, QOD
  4. PYRIDOSTIGMINE BROMIDE. [Concomitant]
     Active Substance: PYRIDOSTIGMINE BROMIDE
     Indication: MYASTHENIA GRAVIS
     Dosage: 120 MG, QD

REACTIONS (1)
  - Prinzmetal angina [Recovering/Resolving]
